FAERS Safety Report 8505966-6 (Version None)
Quarter: 2012Q3

REPORT INFORMATION
  Report Type: 
  Country: None (occurrence: None)
  Receive Date: 20120712
  Receipt Date: 20120703
  Transmission Date: 20120928
  Serious: Yes (Hospitalization)
  Sender: FDA-Public Use
  Company Number: BR-GLAXOSMITHKLINE-A0983988A

PATIENT
  Age: 12 Year
  Sex: Male
  Weight: 70 kg

DRUGS (4)
  1. FENOTEROL HYDROBROMIDE [Suspect]
     Indication: PRODUCT USED FOR UNKNOWN INDICATION
     Dosage: 2BT SINGLE DOSE
     Route: 048
     Dates: start: 20120703, end: 20120703
  2. ORTHOBORIC ACID [Suspect]
     Indication: PRODUCT USED FOR UNKNOWN INDICATION
     Dosage: 1Z SINGLE DOSE
     Route: 048
     Dates: start: 20120703, end: 20120703
  3. PYRETHROID PESTICIDE [Suspect]
     Indication: PRODUCT USED FOR UNKNOWN INDICATION
     Dosage: 60ML SINGLE DOSE
     Route: 048
     Dates: start: 20120703, end: 20120703
  4. ALBUTEROL [Suspect]
     Indication: PRODUCT USED FOR UNKNOWN INDICATION
     Dosage: 6TAB SINGLE DOSE
     Route: 048
     Dates: start: 20120703, end: 20120703

REACTIONS (2)
  - SUICIDE ATTEMPT [None]
  - INTENTIONAL OVERDOSE [None]
